FAERS Safety Report 5649628-1 (Version None)
Quarter: 2008Q1

REPORT INFORMATION
  Report Type: 
  Country: None (occurrence: None)
  Receive Date: 20080304
  Receipt Date: 20080225
  Transmission Date: 20080703
  Serious: Yes (Other)
  Sender: FDA-Public Use
  Company Number: US-PFIZER INC-2008003009

PATIENT
  Age: 16 Year
  Sex: Male
  Weight: 52.8 kg

DRUGS (6)
  1. SILDENAFIL (PAH) [Suspect]
     Indication: PULMONARY HYPERTENSION
     Route: 048
  2. SILDENAFIL (PAH) [Suspect]
     Indication: VENTRICULAR SEPTAL DEFECT
  3. SILDENAFIL (PAH) [Suspect]
     Indication: EISENMENGER'S SYNDROME
  4. BOSENTAN [Suspect]
     Indication: PULMONARY HYPERTENSION
     Route: 048
  5. BOSENTAN [Suspect]
     Indication: VENTRICULAR SEPTAL DEFECT
  6. BOSENTAN [Suspect]
     Indication: EISENMENGER'S SYNDROME

REACTIONS (2)
  - UVEITIS [None]
  - VITREOUS HAEMORRHAGE [None]
